FAERS Safety Report 8570669-9 (Version None)
Quarter: 2012Q3

REPORT INFORMATION
  Report Type: 
  Country: None (occurrence: None)
  Receive Date: 20120805
  Receipt Date: 20120730
  Transmission Date: 20120928
  Serious: Yes (Other)
  Sender: FDA-Public Use
  Company Number: PHHY2012BR066210

PATIENT
  Age: 52 Year
  Sex: Female

DRUGS (3)
  1. NSAID'S [Suspect]
     Indication: ARTHRITIS
     Dosage: 1 DF, TID
  2. OMEPRAZOLE [Suspect]
     Indication: ABDOMINAL PAIN UPPER
     Dosage: 20 MG, TID
     Route: 048
  3. DICLOFENAC SODIUM [Suspect]
     Indication: PAIN
     Dosage: 70 MG, DAILY
     Route: 048

REACTIONS (9)
  - PAIN IN EXTREMITY [None]
  - NERVOUSNESS [None]
  - ABASIA [None]
  - INFLAMMATION [None]
  - OEDEMA PERIPHERAL [None]
  - MOVEMENT DISORDER [None]
  - WEIGHT INCREASED [None]
  - DECREASED APPETITE [None]
  - SOMNOLENCE [None]
